FAERS Safety Report 22748961 (Version 2)
Quarter: 2023Q4

REPORT INFORMATION
  Report Type: Spontaneous
  Country: CA (occurrence: CA)
  Receive Date: 20230725
  Receipt Date: 20231010
  Transmission Date: 20240109
  Serious: Yes (Other)
  Sender: FDA-Public Use
  Company Number: CA-ELI_LILLY_AND_COMPANY-CA202307008519

PATIENT
  Age: 39 Year
  Sex: Male

DRUGS (7)
  1. SOMATROPIN [Suspect]
     Active Substance: SOMATROPIN
     Indication: Growth hormone deficiency
     Dosage: 400 UG, EVERY 7 WEEKS
     Route: 058
     Dates: start: 20210615
  2. SOMATROPIN [Suspect]
     Active Substance: SOMATROPIN
     Dosage: 200 UG, DAILY
     Route: 058
     Dates: end: 2021
  3. SOMATROPIN [Suspect]
     Active Substance: SOMATROPIN
     Dosage: 400 UG, DAILY
     Route: 058
     Dates: start: 2021
  4. SOMATROPIN [Suspect]
     Active Substance: SOMATROPIN
     Dosage: 500 UG, DAILY
     Route: 058
     Dates: start: 2021
  5. SOMATROPIN [Suspect]
     Active Substance: SOMATROPIN
     Dosage: 0.5 MG, DAILY
     Route: 058
     Dates: start: 20230214
  6. HYDROCORTISONE ACETATE [Concomitant]
     Active Substance: HYDROCORTISONE ACETATE
     Indication: Product used for unknown indication
     Dosage: 15 MG, UNKNOWN
     Route: 065
  7. SYNTHROID [Concomitant]
     Active Substance: LEVOTHYROXINE SODIUM
     Indication: Product used for unknown indication
     Dosage: 137 UG, UNKNOWN
     Route: 065

REACTIONS (5)
  - Brain neoplasm [Unknown]
  - Condition aggravated [Unknown]
  - Pituitary tumour benign [Unknown]
  - Intentional product misuse [Unknown]
  - Off label use [Unknown]
